FAERS Safety Report 4951193-9 (Version None)
Quarter: 2006Q1

REPORT INFORMATION
  Report Type: 
  Country: None (occurrence: None)
  Receive Date: 20060314
  Receipt Date: 20060303
  Transmission Date: 20060701
  Serious: Yes (Other)
  Sender: FDA-Public Use
  Company Number: B0415039A

PATIENT
  Sex: Female

DRUGS (1)
  1. RETROVIR [Suspect]
     Indication: HIV INFECTION
     Dosage: 100 MG

REACTIONS (6)
  - DRUG EXPOSURE DURING PREGNANCY [None]
  - MATERNAL USE OF ILLICIT DRUGS [None]
  - PREMATURE LABOUR [None]
  - PREMATURE RUPTURE OF MEMBRANES [None]
  - THREATENED LABOUR [None]
  - TWIN PREGNANCY [None]
